FAERS Safety Report 9758474 (Version 1)
Quarter: 2013Q4

REPORT INFORMATION
  Report Type: Spontaneous
  Country: US (occurrence: None)
  Receive Date: 20131216
  Receipt Date: 20131216
  Transmission Date: 20140711
  Serious: No
  Sender: FDA-Public Use
  Company Number: CABO-13002369

PATIENT
  Age: 72 Year
  Sex: Male
  Weight: 77 kg

DRUGS (1)
  1. COMETRIQ [Suspect]
     Indication: MEDULLARY THYROID CANCER
     Dosage: 140 MG, QD, ORAL?120 MG, QD, ORAL?60 MG, QD, ORAL

REACTIONS (16)
  - Dry mouth [None]
  - Anorectal discomfort [None]
  - Skin atrophy [None]
  - Rash [None]
  - Muscular weakness [None]
  - Abdominal discomfort [None]
  - Frequent bowel movements [None]
  - Dry skin [None]
  - Fatigue [None]
  - Glossitis [None]
  - Blood calcium decreased [None]
  - Pain in extremity [None]
  - Oral pain [None]
  - Dysgeusia [None]
  - Decreased appetite [None]
  - Asthenia [None]
